FAERS Safety Report 8022598 (Version 2)
Quarter: 2013Q3

REPORT INFORMATION
  Report Type: Spontaneous
  Country: CZ (occurrence: CZ)
  Receive Date: 20110706
  Receipt Date: 20130925
  Transmission Date: 20140515
  Serious: Yes (Other)
  Sender: FDA-Public Use
  Company Number: CZ-BAYER-2011-053911

PATIENT
  Age: 48 Year
  Sex: Male

DRUGS (3)
  1. NEXAVAR [Suspect]
     Indication: HEPATOCELLULAR CARCINOMA
     Dosage: UNK
     Dates: start: 200901, end: 200908
  2. NEXAVAR [Suspect]
     Indication: HEPATOCELLULAR CARCINOMA
     Dosage: UNK
     Dates: start: 200908, end: 200911
  3. NEXAVAR [Suspect]
     Indication: HEPATOCELLULAR CARCINOMA
     Dosage: UNK
     Dates: start: 200912

REACTIONS (7)
  - Duodenal ulcer [None]
  - Ascites [None]
  - Hepatic failure [None]
  - Duodenal ulcer [None]
  - Duodenal ulcer haemorrhage [None]
  - Melaena [None]
  - Haematemesis [None]
